FAERS Safety Report 8829444 (Version 3)
Quarter: 2014Q4

REPORT INFORMATION
  Report Type: Report from Study
  Country: DE (occurrence: DE)
  Receive Date: 20121008
  Receipt Date: 20141208
  Transmission Date: 20150529
  Serious: Yes (Death)
  Sender: FDA-Public Use
  Company Number: DE-ROCHE-1013722

PATIENT
  Age: 50 Year
  Sex: Female
  Weight: 67.3 kg

DRUGS (8)
  1. VEMURAFENIB [Suspect]
     Active Substance: VEMURAFENIB
     Indication: METASTATIC MALIGNANT MELANOMA
     Dosage: DATE OF LAST DOSE PRIOR TO SAE: 08/NOV/2011
     Route: 048
     Dates: start: 20110721, end: 20111108
  2. VALORON (GERMANY) [Concomitant]
     Route: 065
     Dates: start: 2010, end: 20111114
  3. ADVANTAN [Concomitant]
     Active Substance: CORTICOSTEROID NOS
     Route: 065
     Dates: start: 20110816, end: 20111114
  4. METOCLOPRAMID [Concomitant]
     Active Substance: METOCLOPRAMIDE
     Route: 065
     Dates: start: 2010, end: 20111114
  5. XUSAL [Concomitant]
     Active Substance: LEVOCETIRIZINE DIHYDROCHLORIDE
     Route: 065
     Dates: start: 20110808, end: 20111114
  6. PANTOPRAZOLE [Concomitant]
     Active Substance: PANTOPRAZOLE SODIUM
     Route: 065
     Dates: start: 2010, end: 20111114
  7. NOVALGIN [Concomitant]
     Active Substance: METAMIZOLE SODIUM
     Route: 065
     Dates: start: 2010, end: 20111114
  8. BETAGALEN [Concomitant]
     Route: 065
     Dates: start: 20110816, end: 20111114

REACTIONS (1)
  - Intracranial tumour haemorrhage [Fatal]

NARRATIVE: CASE EVENT DATE: 20111112
